FAERS Safety Report 10351963 (Version 1)
Quarter: 2014Q3

REPORT INFORMATION
  Report Type: Spontaneous
  Country: US (occurrence: US)
  Receive Date: 20140730
  Receipt Date: 20140730
  Transmission Date: 20150326
  Serious: No
  Sender: FDA-Public Use
  Company Number: US-ABBVIE-13P-163-1175646-00

PATIENT
  Sex: Female

DRUGS (2)
  1. SYNTHROID [Suspect]
     Active Substance: LEVOTHYROXINE SODIUM
     Indication: THYROIDECTOMY
     Dates: start: 1950, end: 2009
  2. SYNTHROID [Suspect]
     Active Substance: LEVOTHYROXINE SODIUM
     Indication: THYROIDECTOMY
     Dates: start: 2009

REACTIONS (8)
  - Thyroid function test abnormal [Recovered/Resolved]
  - Product colour issue [Recovered/Resolved]
  - Drug effect incomplete [Unknown]
  - Nasopharyngitis [Recovered/Resolved]
  - Product quality issue [Not Recovered/Not Resolved]
  - Thyroid function test abnormal [Unknown]
  - Somnolence [Not Recovered/Not Resolved]
  - Product coating issue [Not Recovered/Not Resolved]

NARRATIVE: CASE EVENT DATE: 2009
